FAERS Safety Report 18175077 (Version 3)
Quarter: 2020Q4

REPORT INFORMATION
  Report Type: Spontaneous
  Country: ES (occurrence: ES)
  Receive Date: 20200820
  Receipt Date: 20201019
  Transmission Date: 20210113
  Serious: Yes (Hospitalization)
  Sender: FDA-Public Use
  Company Number: ES-AMERICAN REGENT INC-2020001659

PATIENT
  Age: 74 Year
  Sex: Male

DRUGS (6)
  1. OPTOVITE B12 [Suspect]
     Active Substance: CYANOCOBALAMIN
     Indication: GASTROINTESTINAL HAEMORRHAGE
     Dosage: UNK
     Route: 030
     Dates: start: 201608
  2. ENALAPRIL [Concomitant]
     Active Substance: ENALAPRIL
     Indication: PRODUCT USED FOR UNKNOWN INDICATION
     Dosage: UNK
     Route: 065
  3. FERINJECT [Suspect]
     Active Substance: FERRIC CARBOXYMALTOSE
     Indication: IRON DEFICIENCY
     Dosage: 1 X 20 ML VIAL (100 MG, 1 IN 6 MONTHS)
     Route: 042
     Dates: start: 201608, end: 201809
  4. FERINJECT [Suspect]
     Active Substance: FERRIC CARBOXYMALTOSE
     Indication: GASTROINTESTINAL HAEMORRHAGE
     Dosage: UNK
  5. LEVOTHYROXINE. [Concomitant]
     Active Substance: LEVOTHYROXINE
     Indication: HYPOTHYROIDISM
     Dosage: UNK
     Route: 065
  6. OMEPRAZOLE. [Concomitant]
     Active Substance: OMEPRAZOLE
     Indication: PRODUCT USED FOR UNKNOWN INDICATION
     Dosage: UNK
     Route: 065

REACTIONS (2)
  - Osteoarthritis [Not Recovered/Not Resolved]
  - Hypophosphataemic osteomalacia [Recovered/Resolved]

NARRATIVE: CASE EVENT DATE: 20180817
